FAERS Safety Report 13749218 (Version 1)
Quarter: 2017Q3

REPORT INFORMATION
  Report Type: Spontaneous
  Country: US (occurrence: US)
  Receive Date: 20170713
  Receipt Date: 20170713
  Transmission Date: 20171127
  Serious: No
  Sender: FDA-Public Use
  Company Number: US-GLAXOSMITHKLINE-US2017107472

PATIENT
  Age: 79 Year
  Sex: Female

DRUGS (13)
  1. LOSARTIN [Concomitant]
     Active Substance: LOSARTAN
  2. ZYRTEC [Concomitant]
     Active Substance: CETIRIZINE HYDROCHLORIDE
  3. LIPITOR [Concomitant]
     Active Substance: ATORVASTATIN CALCIUM
  4. BREO ELLIPTA [Suspect]
     Active Substance: FLUTICASONE FUROATE\VILANTEROL TRIFENATATE
     Indication: PULMONARY FIBROSIS
     Dosage: 1 PUFF(S), 1D
     Route: 055
     Dates: start: 201703
  5. METOPROLOL TARTRATE. [Concomitant]
     Active Substance: METOPROLOL TARTRATE
  6. NASOCORT [Concomitant]
     Active Substance: BUDESONIDE
  7. COQ10 [Concomitant]
     Active Substance: UBIDECARENONE
  8. MAGNESIUM [Concomitant]
     Active Substance: MAGNESIUM
  9. ASPIRIN (BABY) [Concomitant]
     Active Substance: ASPIRIN
  10. CELEBREX [Concomitant]
     Active Substance: CELECOXIB
  11. DILTIAZEM. [Concomitant]
     Active Substance: DILTIAZEM
  12. KRILL OIL [Concomitant]
     Active Substance: DIETARY SUPPLEMENT
  13. OMEPRAZOLE. [Concomitant]
     Active Substance: OMEPRAZOLE

REACTIONS (4)
  - Abdominal pain upper [Not Recovered/Not Resolved]
  - Dysphonia [Not Recovered/Not Resolved]
  - Tongue disorder [Not Recovered/Not Resolved]
  - Diarrhoea [Not Recovered/Not Resolved]

NARRATIVE: CASE EVENT DATE: 201704
